FAERS Safety Report 17681537 (Version 2)
Quarter: 2020Q2

REPORT INFORMATION
  Report Type: Report from Study
  Country: DZ (occurrence: DZ)
  Receive Date: 20200417
  Receipt Date: 20200424
  Transmission Date: 20200714
  Serious: Yes (Death)
  Sender: FDA-Public Use
  Company Number: PHHY2019DZ095668

PATIENT
  Age: 44 Year
  Sex: Female

DRUGS (4)
  1. VOTRIENT [Suspect]
     Active Substance: PAZOPANIB HYDROCHLORIDE
     Indication: RENAL CELL CARCINOMA
     Dosage: 800 OT, UNK
     Route: 048
     Dates: start: 20181114, end: 20190115
  2. VOTRIENT [Suspect]
     Active Substance: PAZOPANIB HYDROCHLORIDE
     Dosage: UNK
     Route: 048
     Dates: start: 20190115, end: 10190201
  3. IRBESARTANA [Concomitant]
     Indication: HYPERTENSION
     Dosage: 150 OT, UNK
     Route: 048
     Dates: start: 20130120
  4. GLIBENCLAMID [Concomitant]
     Active Substance: GLYBURIDE
     Indication: DIABETES MELLITUS
     Dosage: 5 OT
     Route: 048
     Dates: start: 20180301

REACTIONS (4)
  - Asthenia [Fatal]
  - Malignant neoplasm progression [Fatal]
  - Stomatitis [Recovered/Resolved]
  - Renal cell carcinoma [Fatal]

NARRATIVE: CASE EVENT DATE: 20181225
